FAERS Safety Report 25899116 (Version 1)
Quarter: 2025Q4

REPORT INFORMATION
  Report Type: Spontaneous
  Country: JP (occurrence: JP)
  Receive Date: 20251009
  Receipt Date: 20251009
  Transmission Date: 20260118
  Serious: Yes (Hospitalization)
  Sender: ALEXION PHARMACEUTICALS
  Company Number: JP-SA-2025SA293574

PATIENT
  Age: 23 Month
  Sex: Female

DRUGS (6)
  1. BEYFORTUS [Suspect]
     Active Substance: NIRSEVIMAB-ALIP
     Indication: Product used for unknown indication
     Dosage: 200 MG
     Route: 065
     Dates: start: 20250430, end: 20250430
  2. OXYGEN [Concomitant]
     Active Substance: OXYGEN
     Indication: Chronic respiratory disease
  3. OXYGEN [Concomitant]
     Active Substance: OXYGEN
     Indication: Respiratory syncytial virus infection
     Dosage: UNK
     Dates: start: 20250921, end: 20250925
  4. OXYGEN [Concomitant]
     Active Substance: OXYGEN
     Indication: Asthma
  5. LEVOTHYROXINE [Concomitant]
     Active Substance: LEVOTHYROXINE
     Indication: Hypothyroidism
     Dosage: 10 MG
  6. MONTELUKAST SODIUM [Concomitant]
     Active Substance: MONTELUKAST SODIUM
     Indication: Asthma
     Dosage: 4 MG

REACTIONS (4)
  - Respiratory syncytial virus infection [Recovered/Resolved]
  - Cough [Recovered/Resolved]
  - Rhinorrhoea [Recovered/Resolved]
  - Asthma [Unknown]

NARRATIVE: CASE EVENT DATE: 20250901
